FAERS Safety Report 12729330 (Version 1)
Quarter: 2016Q3

REPORT INFORMATION
  Report Type: Spontaneous
  Country: GB (occurrence: GB)
  Receive Date: 20160909
  Receipt Date: 20160909
  Transmission Date: 20161109
  Serious: Yes (Hospitalization)
  Sender: FDA-Public Use
  Company Number: GB-MYLANLABS-2016M1037536

PATIENT

DRUGS (5)
  1. ATORVASTATIN [Suspect]
     Active Substance: ATORVASTATIN
     Dosage: 40 MG, QD (AT NIGHT, INTRODUCED IN LAST COUPLE OF MONTHS)
  2. METFORMIN [Concomitant]
     Active Substance: METFORMIN HYDROCHLORIDE
     Dosage: 1.5 G, UNK (1 GRAM  IN THE MORNING, 500 MILLIGRAMS AT TEATIME.)
  3. GLICLAZIDE [Concomitant]
     Active Substance: GLICLAZIDE
     Dosage: 40 MG, QD (ONE TO BE TAKEN TWICE DAILY -PATIENT TAKES EVERY MORNING)
  4. FLUCLOXACILLIN [Concomitant]
     Active Substance: FLUCLOXACILLIN
     Dosage: MULTIPLE COURSES
  5. AMITRIPTYLINE [Suspect]
     Active Substance: AMITRIPTYLINE
     Dosage: 10 MG, QD (AT NIGHT, INTRODUCED IN LAST COUPLE OF MONTHS)

REACTIONS (3)
  - Abnormal loss of weight [Unknown]
  - Pruritus [Unknown]
  - Pemphigoid [Recovering/Resolving]
